FAERS Safety Report 10053349 (Version 1)
Quarter: 2014Q2

REPORT INFORMATION
  Report Type: Spontaneous
  Country: US (occurrence: US)
  Receive Date: 20140402
  Receipt Date: 20140402
  Transmission Date: 20141212
  Serious: No
  Sender: FDA-Public Use
  Company Number: US-MALLINCKRODT-T201400054

PATIENT
  Age: 53 Year
  Sex: Female

DRUGS (6)
  1. OPTIRAY [Suspect]
     Indication: COMPUTERISED TOMOGRAM
     Dosage: 125 ML, SINGLE, WARMED, 2 CC/SEC
     Route: 042
     Dates: start: 20140103, end: 20140103
  2. GLYBURIDE [Concomitant]
     Indication: DIABETES MELLITUS
  3. ORENCIA [Concomitant]
     Indication: DIABETES MELLITUS
  4. LEXAPRO [Concomitant]
     Dosage: 10 MG, UNK
  5. LEVOTHYROXINE [Concomitant]
     Dosage: 25 MCG
  6. METFORMIN [Concomitant]
     Dosage: 500 MG, UNK

REACTIONS (2)
  - Throat irritation [Unknown]
  - Urticaria [Unknown]
